FAERS Safety Report 19476926 (Version 1)
Quarter: 2021Q2

REPORT INFORMATION
  Report Type: Spontaneous
  Country: US (occurrence: US)
  Receive Date: 20210630
  Receipt Date: 20210630
  Transmission Date: 20210717
  Serious: No
  Sender: FDA-Public Use
  Company Number: US-PFIZER INC-2021648899

PATIENT
  Age: 81 Year
  Sex: Male

DRUGS (1)
  1. MEKTOVI [Suspect]
     Active Substance: BINIMETINIB
     Dosage: 45 MG

REACTIONS (3)
  - Nausea [Unknown]
  - Eye disorder [Unknown]
  - Rash [Unknown]
